FAERS Safety Report 5271172-4 (Version None)
Quarter: 2007Q1

REPORT INFORMATION
  Report Type: 
  Country: None (occurrence: None)
  Receive Date: 20070321
  Receipt Date: 20070313
  Transmission Date: 20070707
  Serious: Yes (Other)
  Sender: FDA-Public Use
  Company Number: US-ROCHE-487278

PATIENT
  Sex: Female

DRUGS (2)
  1. BONIVA [Suspect]
     Indication: DRUG USE FOR UNKNOWN INDICATION
     Route: 048
     Dates: start: 20070115
  2. UNKNOWN MEDICATION FOR PAIN [Suspect]
     Route: 065

REACTIONS (4)
  - ARTHRALGIA [None]
  - CARTILAGE INJURY [None]
  - INFLUENZA LIKE ILLNESS [None]
  - VOMITING [None]
